FAERS Safety Report 10659091 (Version 2)
Quarter: 2014Q4

REPORT INFORMATION
  Report Type: Spontaneous
  Country: US (occurrence: US)
  Receive Date: 20141217
  Receipt Date: 20141217
  Transmission Date: 20150529
  Serious: No
  Sender: FDA-Public Use
  Company Number: US-GLAXOSMITHKLINE-A1073364A

PATIENT

DRUGS (1)
  1. VOTRIENT [Suspect]
     Active Substance: PAZOPANIB HYDROCHLORIDE
     Indication: SOFT TISSUE SARCOMA
     Dosage: 200 MG, UNKNOWN DOSING.200 MG, ^T.I.W.^ (THREE TIMES A WEEK).
     Route: 065
     Dates: start: 20130830

REACTIONS (2)
  - Hypersomnia [Unknown]
  - Somnolence [Recovering/Resolving]
